FAERS Safety Report 18313217 (Version 1)
Quarter: 2020Q3

REPORT INFORMATION
  Report Type: Spontaneous
  Country: US (occurrence: US)
  Receive Date: 20200925
  Receipt Date: 20200925
  Transmission Date: 20201103
  Serious: No
  Sender: FDA-Public Use
  Company Number: US-ELI_LILLY_AND_COMPANY-US201909001747

PATIENT

DRUGS (1)
  1. TRULICITY [Suspect]
     Active Substance: DULAGLUTIDE
     Indication: PRODUCT USED FOR UNKNOWN INDICATION
     Dosage: UNK UNK, UNKNOWN
     Route: 065

REACTIONS (7)
  - Asthenia [Unknown]
  - Glycosylated haemoglobin increased [Unknown]
  - Decreased appetite [Unknown]
  - Blood glucose increased [Unknown]
  - Drug ineffective [Unknown]
  - Nausea [Unknown]
  - Illness [Unknown]
